FAERS Safety Report 22310424 (Version 1)
Quarter: 2023Q2

REPORT INFORMATION
  Report Type: Spontaneous
  Country: US (occurrence: None)
  Receive Date: 20230509
  Receipt Date: 20230509
  Transmission Date: 20230722
  Serious: Yes (Hospitalization)
  Sender: FDA-Public Use
  Company Number: None

PATIENT
  Age: 51 Year
  Sex: Male
  Weight: 92.70 kg

DRUGS (1)
  1. MIRCERA [Suspect]
     Active Substance: METHOXY POLYETHYLENE GLYCOL-EPOETIN BETA
     Indication: Anaemia
     Dosage: OTHER FREQUENCY : OTHER: EVERY 2 WKS;?
     Route: 042
     Dates: start: 20230410, end: 20230508

REACTIONS (2)
  - Unresponsive to stimuli [None]
  - Hypopnoea [None]

NARRATIVE: CASE EVENT DATE: 20230508
